FAERS Safety Report 8756100 (Version 1)
Quarter: 2012Q4

REPORT INFORMATION
  Report Type: 
  Country: US (occurrence: US)
  Receive Date: 20120828
  Receipt Date: 20120828
  Transmission Date: 20130627
  Serious: No
  Sender: FDA-Public Use
  Company Number: US-PFIZER INC-2012207925

PATIENT
  Sex: Male

DRUGS (3)
  1. AMIODARONE HCL [Suspect]
     Dosage: 400 mg, 2x/day
  2. AMIODARONE HCL [Suspect]
     Dosage: 400 mg, daily
  3. AMIODARONE HCL [Suspect]
     Dosage: 200 mg, daily

REACTIONS (3)
  - Blood thyroid stimulating hormone increased [Unknown]
  - Neuropathy peripheral [Unknown]
  - Tremor [Unknown]
